FAERS Safety Report 23111711 (Version 1)
Quarter: 2023Q4

REPORT INFORMATION
  Report Type: Report from Study
  Country: RU (occurrence: RU)
  Receive Date: 20231026
  Receipt Date: 20231026
  Transmission Date: 20240110
  Serious: Yes (Other)
  Sender: FDA-Public Use
  Company Number: RU-002147023-NVSC2023RU226561

PATIENT
  Age: 49 Year
  Sex: Male

DRUGS (1)
  1. KESIMPTA [Suspect]
     Active Substance: OFATUMUMAB
     Indication: Multiple sclerosis
     Dosage: 20 MG, Q4W
     Route: 058
     Dates: start: 201802, end: 202306

REACTIONS (5)
  - Multiple sclerosis relapse [Recovered/Resolved]
  - Ataxia [Recovered/Resolved]
  - Paraparesis [Recovered/Resolved]
  - COVID-19 [Recovered/Resolved]
  - Pneumonia viral [Recovered/Resolved]

NARRATIVE: CASE EVENT DATE: 20180501
